FAERS Safety Report 10146277 (Version 1)
Quarter: 2014Q2

REPORT INFORMATION
  Report Type: Spontaneous
  Country: US (occurrence: US)
  Receive Date: 20140501
  Receipt Date: 20140501
  Transmission Date: 20141212
  Serious: Yes (Hospitalization)
  Sender: FDA-Public Use
  Company Number: US-PFIZER INC-2014116634

PATIENT
  Age: 74 Year
  Sex: Male
  Weight: 85 kg

DRUGS (8)
  1. ZYVOX [Suspect]
     Indication: BACTERAEMIA
     Dosage: 1200 MG, 2X/DAY
     Dates: start: 20140411, end: 20140423
  2. ASPIRIN [Concomitant]
     Indication: CORONARY ARTERY DISEASE
     Dosage: 81 MG, DAILY
  3. SIMVASTATIN [Concomitant]
     Indication: CORONARY ARTERY DISEASE
     Dosage: 20 MG, DAILY
  4. SIMVASTATIN [Concomitant]
     Indication: HYPERLIPIDAEMIA
  5. METOPROLOL [Concomitant]
     Indication: HYPERTENSION
     Dosage: 50 MG, DAILY
  6. ENALAPRIL [Concomitant]
     Indication: HYPERTENSION
     Dosage: 20 MG, 2X/DAY
  7. LASIX [Concomitant]
     Indication: HYPERTENSION
     Dosage: 40 MG, DAILY
  8. WARFARIN [Concomitant]
     Indication: ATRIAL FIBRILLATION
     Dosage: 3 MG, DAILY

REACTIONS (4)
  - Lactic acidosis [Not Recovered/Not Resolved]
  - Nausea [Unknown]
  - Vomiting [Unknown]
  - Abdominal pain [Unknown]
